FAERS Safety Report 18096833 (Version 1)
Quarter: 2020Q3

REPORT INFORMATION
  Report Type: Spontaneous
  Country: US (occurrence: US)
  Receive Date: 20200731
  Receipt Date: 20200731
  Transmission Date: 20201103
  Serious: No
  Sender: FDA-Public Use
  Company Number: US-CADILA HEALTHCARE LIMITED-US-ZYDUS-050643

PATIENT

DRUGS (1)
  1. MESALAMINE 1.2 GRAM TABLET, DELAYED RELEASE [Suspect]
     Active Substance: MESALAMINE
     Indication: COLITIS ULCERATIVE
     Dosage: 4.8 GRAM, QD
     Route: 048
     Dates: start: 2019

REACTIONS (2)
  - Product solubility abnormal [Not Recovered/Not Resolved]
  - Drug ineffective [Not Recovered/Not Resolved]

NARRATIVE: CASE EVENT DATE: 2019
